FAERS Safety Report 16748694 (Version 6)
Quarter: 2019Q4

REPORT INFORMATION
  Report Type: Spontaneous
  Country: US (occurrence: US)
  Receive Date: 20190828
  Receipt Date: 20191031
  Transmission Date: 20200122
  Serious: No
  Sender: FDA-Public Use
  Company Number: US-BIOGEN-2019BI00778902

PATIENT
  Sex: Female

DRUGS (5)
  1. TECFIDERA [Suspect]
     Active Substance: DIMETHYL FUMARATE
     Indication: MULTIPLE SCLEROSIS
     Dosage: WEEK 1
     Route: 065
     Dates: start: 20190823
  2. TECFIDERA [Suspect]
     Active Substance: DIMETHYL FUMARATE
     Dosage: TAKE 1 CAPSULE (240MG) BY MOUTH TWICE DAILY
     Route: 048
     Dates: start: 20190823
  3. VITAMIN B12 [Concomitant]
     Active Substance: CYANOCOBALAMIN
     Route: 065
  4. PAXIL [Concomitant]
     Active Substance: PAROXETINE HYDROCHLORIDE
     Route: 065
  5. TECFIDERA [Suspect]
     Active Substance: DIMETHYL FUMARATE
     Dosage: 120 MG IN MORNING AND 120 MG IN EVENING, WEEK 2, 3 AND WEEK 4
     Route: 048

REACTIONS (9)
  - Acne [Unknown]
  - Decreased appetite [Not Recovered/Not Resolved]
  - Rash [Unknown]
  - Feeling hot [Unknown]
  - Flushing [Not Recovered/Not Resolved]
  - Feeling abnormal [Unknown]
  - Product dose omission [Unknown]
  - Diarrhoea [Not Recovered/Not Resolved]
  - Fatigue [Not Recovered/Not Resolved]
